FAERS Safety Report 5179287-6 (Version None)
Quarter: 2006Q4

REPORT INFORMATION
  Report Type: 
  Country: None (occurrence: None)
  Receive Date: 20061211
  Receipt Date: 20061129
  Transmission Date: 20070319
  Serious: Yes (Hospitalization)
  Sender: FDA-Public Use
  Company Number: 227823

PATIENT
  Sex: Female
  Weight: 65.4 kg

DRUGS (3)
  1. AVASTIN [Suspect]
     Indication: PANCREATIC CARCINOMA METASTATIC
     Dosage: 10  MG/KG, DAYS 1+15, INTRAVENOUS
     Route: 042
     Dates: start: 20050921
  2. GEMCITABINE [Suspect]
     Indication: PANCREATIC CARCINOMA METASTATIC
     Dosage: 1000 MG/M2, DAYS 1+15, INTRAVENOUS
     Route: 042
     Dates: start: 20050921
  3. OXALIPLATIN [Suspect]
     Indication: PANCREATIC CARCINOMA METASTATIC
     Dosage: 100 MG/M2, INTRAVENOUS
     Route: 042
     Dates: start: 20050921

REACTIONS (9)
  - ANAEMIA [None]
  - ASPARTATE AMINOTRANSFERASE INCREASED [None]
  - DEHYDRATION [None]
  - DISSEMINATED INTRAVASCULAR COAGULATION [None]
  - FATIGUE [None]
  - NEUTROPHIL COUNT DECREASED [None]
  - PROTHROMBIN TIME PROLONGED [None]
  - THROMBOCYTOPENIA [None]
  - WHITE BLOOD CELL COUNT DECREASED [None]
